FAERS Safety Report 19084611 (Version 1)
Quarter: 2021Q2

REPORT INFORMATION
  Report Type: Spontaneous
  Country: US (occurrence: US)
  Receive Date: 20210401
  Receipt Date: 20210401
  Transmission Date: 20210717
  Serious: No
  Sender: FDA-Public Use
  Company Number: US-IBSA PHARMA-2016-IBS-00719

PATIENT
  Age: 72 Year

DRUGS (6)
  1. FLECTOR [Suspect]
     Active Substance: DICLOFENAC EPOLAMINE
     Indication: SCIATICA
  2. FLECTOR [Suspect]
     Active Substance: DICLOFENAC EPOLAMINE
     Indication: OSTEOARTHRITIS
  3. FLECTOR [Suspect]
     Active Substance: DICLOFENAC EPOLAMINE
     Indication: PAIN
  4. FLECTOR [Suspect]
     Active Substance: DICLOFENAC EPOLAMINE
     Indication: BACK PAIN
  5. FLECTOR [Suspect]
     Active Substance: DICLOFENAC EPOLAMINE
     Indication: ARTHRITIS
     Dosage: 1 DF, BID, 1 PATCH EVERY 12 HOURS
     Route: 061
     Dates: start: 2010
  6. BIOFREEZE                          /00482701/ [Concomitant]
     Route: 065

REACTIONS (10)
  - Pyrexia [Unknown]
  - Illness [Unknown]
  - Drug ineffective [Unknown]
  - Abdominal pain upper [Unknown]
  - Influenza [Unknown]
  - Pain [Unknown]
  - Intentional overdose [Unknown]
  - Abdominal discomfort [Unknown]
  - Gait disturbance [Unknown]
  - Intentional product misuse [Unknown]
